FAERS Safety Report 9299945 (Version 1)
Quarter: 2012Q4

REPORT INFORMATION
  Report Type: Spontaneous
  Country: DE (occurrence: None)
  Receive Date: 20121120
  Receipt Date: 20121120
  Transmission Date: 20130627
  Serious: Yes (Life-Threatening, Other)
  Sender: FDA-Public Use
  Company Number: EUS-2012-00472

PATIENT
  Age: 15 Year
  Sex: Male

DRUGS (1)
  1. ASPARAGINASE (UNSPECIFIED)(ASPARAGINASE) [Suspect]
     Indication: ACUTE LYMPHOCYTIC LEUKAEMIA

REACTIONS (2)
  - Hypertriglyceridaemia [None]
  - Intracranial venous sinus thrombosis [None]
